FAERS Safety Report 22160939 (Version 1)
Quarter: 2023Q1

REPORT INFORMATION
  Report Type: Spontaneous
  Country: US (occurrence: None)
  Receive Date: 20230330
  Receipt Date: 20230330
  Transmission Date: 20230418
  Serious: No
  Sender: FDA-Public Use
  Company Number: None

PATIENT
  Age: 77 Year
  Sex: Male
  Weight: 70.31 kg

DRUGS (1)
  1. ODOMZO [Suspect]
     Active Substance: SONIDEGIB
     Indication: Basal cell carcinoma
     Dosage: TAKE 1 CAPSAULE BY MOUTH DAILY ON EMPTY STOMAC, AT LEAST 1 HOUR BEFORE OR 2 HOURS AFTER A MEAL AS ?
     Route: 048
     Dates: start: 202301

REACTIONS (1)
  - Atrial fibrillation [None]
